FAERS Safety Report 21898274 (Version 1)
Quarter: 2023Q1

REPORT INFORMATION
  Report Type: Spontaneous
  Country: US (occurrence: None)
  Receive Date: 20230121
  Receipt Date: 20230121
  Transmission Date: 20230417
  Serious: No
  Sender: FDA-Public Use
  Company Number: None

PATIENT
  Sex: Male
  Weight: 88.8 kg

DRUGS (2)
  1. CARBOPLATIN [Suspect]
     Active Substance: CARBOPLATIN
     Dates: end: 20221024
  2. TAXOL [Suspect]
     Active Substance: PACLITAXEL
     Dates: end: 20221024

REACTIONS (16)
  - Atrial fibrillation [None]
  - Respiratory disorder [None]
  - Acute respiratory failure [None]
  - Pyrexia [None]
  - Pleural effusion [None]
  - Atelectasis [None]
  - Lung infiltration [None]
  - Pneumonia [None]
  - Oedema [None]
  - Ascites [None]
  - Empyema [None]
  - Enterobacter test positive [None]
  - Haemophilus test positive [None]
  - Abdominal wound dehiscence [None]
  - Haemoperitoneum [None]
  - Post procedural complication [None]

NARRATIVE: CASE EVENT DATE: 20230112
